FAERS Safety Report 23347683 (Version 1)
Quarter: 2023Q4

REPORT INFORMATION
  Report Type: Spontaneous
  Country: CN (occurrence: CN)
  Receive Date: 20231228
  Receipt Date: 20231228
  Transmission Date: 20240109
  Serious: Yes (Other)
  Sender: FDA-Public Use
  Company Number: CN-002147023-NVSC2023CN269316

PATIENT
  Age: 75 Year
  Sex: Male
  Weight: 59.1 kg

DRUGS (1)
  1. DEXAMETHASONE\TOBRAMYCIN [Suspect]
     Active Substance: DEXAMETHASONE\TOBRAMYCIN
     Indication: Cataract
     Dosage: 0.1 G, QD
     Route: 047
     Dates: start: 20231122, end: 20231122

REACTIONS (3)
  - Corneal exfoliation [Recovering/Resolving]
  - Corneal oedema [Recovering/Resolving]
  - Sensation of foreign body [Recovering/Resolving]

NARRATIVE: CASE EVENT DATE: 20231122
